FAERS Safety Report 4876776-6 (Version None)
Quarter: 2005Q4

REPORT INFORMATION
  Report Type: 
  Country: None (occurrence: None)
  Receive Date: 20051206
  Receipt Date: 20050803
  Transmission Date: 20060501
  Serious: No
  Sender: FDA-Public Use
  Company Number: USA050393973

PATIENT
  Age: 24 Year
  Sex: Female

DRUGS (3)
  1. CYMBALTA [Suspect]
     Dosage: 30 MG/DIVIDED
  2. NEURONTIN [Concomitant]
  3. ATIVAN [Concomitant]

REACTIONS (1)
  - HALLUCINATION [None]
